FAERS Safety Report 16601778 (Version 4)
Quarter: 2019Q4

REPORT INFORMATION
  Report Type: Spontaneous
  Country: US (occurrence: US)
  Receive Date: 20190719
  Receipt Date: 20191108
  Transmission Date: 20200122
  Serious: Yes (Hospitalization, Other)
  Sender: FDA-Public Use
  Company Number: US-PFIZER INC-2019311375

PATIENT
  Age: 63 Year
  Sex: Male
  Weight: 88.89 kg

DRUGS (6)
  1. ASPIRIN [ACETYLSALICYLIC ACID] [Concomitant]
     Active Substance: ASPIRIN
     Indication: BUNDLE BRANCH BLOCK RIGHT
     Dosage: 81 MG, DAILY
  2. PREDNISONE. [Concomitant]
     Active Substance: PREDNISONE
     Dosage: 2.5 MG, 1X/DAY
     Route: 048
  3. XELJANZ XR [Suspect]
     Active Substance: TOFACITINIB CITRATE
     Indication: RHEUMATOID ARTHRITIS
     Dosage: 11 MG, 1X/DAY
     Route: 048
     Dates: start: 20180824, end: 20190813
  4. XELJANZ XR [Suspect]
     Active Substance: TOFACITINIB CITRATE
     Dosage: 11 MG, DAILY
     Route: 048
     Dates: start: 20180809, end: 20190623
  5. ALBUTEROL [SALBUTAMOL] [Concomitant]
     Active Substance: ALBUTEROL
     Dosage: UNK, AS NEEDED (108 INHALER)
  6. FOLIC ACID. [Concomitant]
     Active Substance: FOLIC ACID
     Indication: RHEUMATOID ARTHRITIS
     Dosage: 1000 MG, DAILY

REACTIONS (7)
  - Flatulence [Unknown]
  - Dysphagia [Unknown]
  - Paralysis [Unknown]
  - Thrombosis [Unknown]
  - Bacterial sepsis [Unknown]
  - Ischaemic stroke [Recovered/Resolved with Sequelae]
  - Cerebrovascular accident [Unknown]

NARRATIVE: CASE EVENT DATE: 20190623
